FAERS Safety Report 4496890-7 (Version None)
Quarter: 2004Q3

REPORT INFORMATION
  Report Type: 
  Country: None (occurrence: None)
  Receive Date: 20040928
  Receipt Date: 20040621
  Transmission Date: 20050211
  Serious: No
  Sender: FDA-Public Use
  Company Number: 04P-163-0259029-00

PATIENT
  Age: 55 Year
  Sex: Female

DRUGS (3)
  1. HUMIRA [Suspect]
     Indication: RHEUMATOID ARTHRITIS
     Dosage: 40 MG 1 IN 2 WK SUBCUTANEOUS
     Route: 058
     Dates: start: 20040301, end: 20040501
  2. PREDNISONE [Concomitant]
  3. OMEPRAZOLE [Concomitant]

REACTIONS (2)
  - MENOPAUSAL SYMPTOMS [None]
  - NASOPHARYNGITIS [None]
